FAERS Safety Report 13468882 (Version 4)
Quarter: 2017Q3

REPORT INFORMATION
  Report Type: Spontaneous
  Country: SE (occurrence: SE)
  Receive Date: 20170421
  Receipt Date: 20170717
  Transmission Date: 20171127
  Serious: Yes (Other)
  Sender: FDA-Public Use
  Company Number: SE-PFIZER INC-2017173747

PATIENT
  Age: 75 Year
  Sex: Female

DRUGS (16)
  1. ALVEDON [Concomitant]
     Active Substance: ACETAMINOPHEN
     Dosage: 1330 MG, 3X/DAY
  2. BRUFEN RETARD [Concomitant]
     Active Substance: IBUPROFEN
     Indication: INFLAMMATION
  3. SERTRALINE [Concomitant]
     Active Substance: SERTRALINE HYDROCHLORIDE
     Indication: DEPRESSION
     Dosage: 100 MG, 1X/DAY
  4. PEVARYL /00418501/ [Concomitant]
     Active Substance: ECONAZOLE NITRATE
     Dosage: UNK UNK, 2X/DAY
  5. SALURES [Concomitant]
     Active Substance: BENDROFLUMETHIAZIDE
     Indication: BLOOD PRESSURE MEASUREMENT
     Dosage: 5 MG, 1X/DAY
  6. TOVIAZ [Concomitant]
     Active Substance: FESOTERODINE FUMARATE
     Indication: MICTURITION URGENCY
     Dosage: 8 MG, 1X/DAY
  7. KALEORID [Concomitant]
     Active Substance: POTASSIUM CHLORIDE
     Dosage: 750 MG, 2X/DAY
  8. TERRA-CORTRIL POLYMYXIN B [Suspect]
     Active Substance: HYDROCORTISONE\OXYTETRACYCLINE HYDROCHLORIDE\POLYMYXIN B SULFATE
     Indication: OTITIS EXTERNA
     Dosage: 5 ML, 2-3X/DAY
     Dates: start: 20170413
  9. KALCIPOS-D [Concomitant]
     Active Substance: CALCIUM CARBONATE\CHOLECALCIFEROL
     Dosage: 1 DF, 1X/DAY
  10. ASACOL [Concomitant]
     Active Substance: MESALAMINE
     Dosage: UNK
  11. BETOLVEX /00056201/ [Concomitant]
     Active Substance: CYANOCOBALAMIN
     Dosage: 1 MG, 1X/DAY
  12. EXEMESTAN ACTAVIS [Concomitant]
     Active Substance: EXEMESTANE
     Indication: CANCER HORMONAL THERAPY
     Dosage: 25 MG, 1X/DAY
  13. BETMIGA [Concomitant]
     Active Substance: MIRABEGRON
     Indication: MICTURITION URGENCY
     Dosage: 50 MG, 1X/DAY
  14. SERTRALINE [Concomitant]
     Active Substance: SERTRALINE HYDROCHLORIDE
     Indication: PHOBIA
     Dosage: 50 MG, 1X/DAY
  15. BRUFEN RETARD [Concomitant]
     Active Substance: IBUPROFEN
     Indication: PAIN
     Dosage: 800 MG, 1X/DAY
  16. CANDESARTAN KRKA [Concomitant]
     Active Substance: CANDESARTAN
     Indication: HYPERTENSION
     Dosage: 16 MG, 1X/DAY

REACTIONS (5)
  - Deafness [Not Recovered/Not Resolved]
  - Dysphagia [Not Recovered/Not Resolved]
  - Drug hypersensitivity [Not Recovered/Not Resolved]
  - Arthralgia [Not Recovered/Not Resolved]
  - Oral pain [Not Recovered/Not Resolved]
